FAERS Safety Report 4284481-2 (Version None)
Quarter: 2004Q1

REPORT INFORMATION
  Report Type: 
  Country: None (occurrence: None)
  Receive Date: 20040130
  Receipt Date: 20040130
  Transmission Date: 20041129
  Serious: No
  Sender: FDA-Public Use
  Company Number: None

PATIENT
  Age: 46 Year
  Sex: Female
  Weight: 86.7278 kg

DRUGS (4)
  1. WELLBUTRIN SR [Suspect]
     Indication: ANXIETY
     Dosage: 200 MG PO BID
     Route: 048
  2. WELLBUTRIN SR [Suspect]
     Indication: DEPRESSION
     Dosage: 200 MG PO BID
     Route: 048
  3. OMEPRAZOLE [Concomitant]
  4. HYDROCHLOROTHIAZIDE [Concomitant]

REACTIONS (5)
  - ASTHENIA [None]
  - CHILLS [None]
  - DIZZINESS [None]
  - MUSCLE CRAMP [None]
  - TREMOR [None]
